FAERS Safety Report 21121173 (Version 1)
Quarter: 2022Q3

REPORT INFORMATION
  Report Type: Report from Study
  Country: US (occurrence: US)
  Receive Date: 20220722
  Receipt Date: 20220722
  Transmission Date: 20221027
  Serious: No
  Sender: FDA-Public Use
  Company Number: US-MIRM-000478

PATIENT
  Sex: Male

DRUGS (12)
  1. LIVMARLI [Suspect]
     Active Substance: MARALIXIBAT CHLORIDE
     Indication: Pruritus
     Route: 010
     Dates: start: 20211204
  2. 4356831 (GLOBALC3Sep19): Elecare [Concomitant]
     Indication: Product used for unknown indication
  3. 1328777 (GLOBALC3Sep19): Ursodiol [Concomitant]
     Indication: Product used for unknown indication
  4. 1328916 (GLOBALC3Sep19): Vitamin K [Concomitant]
     Indication: Product used for unknown indication
  5. 1328985 (GLOBALC3Sep19): Zinc [Concomitant]
     Indication: Product used for unknown indication
  6. 3532667 (GLOBALC3Sep19): Bactrim DS [Concomitant]
     Indication: Product used for unknown indication
  7. 2930039 (GLOBALC3Sep19): Hydroxyzine [Concomitant]
     Indication: Product used for unknown indication
  8. 1326650 (GLOBALC3Sep19): Iron [Concomitant]
     Indication: Product used for unknown indication
  9. 1328139 (GLOBALC3Sep19): Rifampin [Concomitant]
     Indication: Product used for unknown indication
  10. 1328876 (GLOBALC3Sep19): Vitamin D3 [Concomitant]
     Indication: Product used for unknown indication
  11. 1328878 (GLOBALC3Sep19): Vitamin E [Concomitant]
     Indication: Product used for unknown indication
  12. LIVMARLI [Suspect]
     Active Substance: MARALIXIBAT CHLORIDE
     Indication: Pruritus
     Route: 048
     Dates: start: 20211204

REACTIONS (2)
  - Femur fracture [Unknown]
  - Ear infection [Unknown]
